FAERS Safety Report 10159402 (Version 2)
Quarter: 2014Q2

REPORT INFORMATION
  Report Type: Spontaneous
  Country: US (occurrence: US)
  Receive Date: 20140508
  Receipt Date: 20140508
  Transmission Date: 20141212
  Serious: No
  Sender: FDA-Public Use
  Company Number: US-009507513-1404USA007050

PATIENT
  Age: 78 Year
  Sex: Female
  Weight: 54.42 kg

DRUGS (8)
  1. OXYTROL FOR WOMEN [Suspect]
     Indication: HYPERTONIC BLADDER
     Dosage: UNK, UNKNOWN
     Route: 062
     Dates: start: 20140315, end: 20140408
  2. OXYTROL FOR WOMEN [Suspect]
     Indication: POLLAKIURIA
  3. METAMUCIL [Concomitant]
     Indication: IRRITABLE BOWEL SYNDROME
     Dosage: UNK, UNKNOWN
  4. METAMUCIL [Concomitant]
     Indication: IRRITABLE BOWEL SYNDROME
  5. METAMUCIL [Concomitant]
     Indication: DIVERTICULUM
  6. PRAVASTATIN SODIUM [Concomitant]
     Indication: BLOOD CHOLESTEROL INCREASED
     Dosage: 40 MG, UNKNOWN
  7. MELOXICAM [Concomitant]
     Indication: PRODUCT USED FOR UNKNOWN INDICATION
     Dosage: UNK, QD
  8. ASPIRIN [Concomitant]
     Indication: PRODUCT USED FOR UNKNOWN INDICATION
     Dosage: UNK, UNKNOWN

REACTIONS (1)
  - Drug ineffective [Unknown]
